FAERS Safety Report 7272731-X (Version None)
Quarter: 2011Q1

REPORT INFORMATION
  Report Type: 
  Country: None (occurrence: None)
  Receive Date: 20110126
  Receipt Date: 20110111
  Transmission Date: 20110831
  Serious: Yes (Other)
  Sender: FDA-Public Use
  Company Number: AUR-APL-2011-00205

PATIENT
  Age: 63 Year
  Sex: Female
  Weight: 71 kg

DRUGS (3)
  1. VALPROATE SODIUM [Concomitant]
  2. CEPHALEXIN [Suspect]
     Dates: start: 20110104
  3. DONEPAZIL [Concomitant]

REACTIONS (1)
  - BLISTER [None]
